FAERS Safety Report 21843829 (Version 3)
Quarter: 2024Q4

REPORT INFORMATION
  Report Type: Report from Study
  Country: US (occurrence: US)
  Receive Date: 20230110
  Receipt Date: 20241223
  Transmission Date: 20250115
  Serious: Yes (Other)
  Sender: UCB
  Company Number: US-UCBSA-2023000805

PATIENT
  Age: 59 Year
  Sex: Male
  Weight: 90.72 kg

DRUGS (8)
  1. CERTOLIZUMAB PEGOL [Suspect]
     Active Substance: CERTOLIZUMAB PEGOL
     Indication: Rheumatoid arthritis
     Dosage: 400 MILLIGRAM, EV 2 WEEKS(QOW)
     Dates: start: 20221214, end: 202302
  2. CERTOLIZUMAB PEGOL [Suspect]
     Active Substance: CERTOLIZUMAB PEGOL
     Indication: Ankylosing spondylitis
  3. DICLOFENAC [Suspect]
     Active Substance: DICLOFENAC
     Indication: Chondrocalcinosis
  4. DICLOFENAC [Suspect]
     Active Substance: DICLOFENAC
     Indication: Ankylosing spondylitis
  5. METHOTREXATE [Suspect]
     Active Substance: METHOTREXATE
     Indication: Chondrocalcinosis
     Dosage: UNK
     Dates: start: 202103
  6. METHOTREXATE [Suspect]
     Active Substance: METHOTREXATE
     Indication: Ankylosing spondylitis
  7. SULFASALAZINE [Suspect]
     Active Substance: SULFASALAZINE
     Indication: Ankylosing spondylitis
     Dosage: UNK
     Dates: start: 202205
  8. SULFASALAZINE [Suspect]
     Active Substance: SULFASALAZINE
     Indication: Chondrocalcinosis

REACTIONS (35)
  - Surgery [Not Recovered/Not Resolved]
  - Haemorrhagic diathesis [Unknown]
  - Hyperprolactinaemia [Unknown]
  - Deafness [Unknown]
  - Ageusia [Recovered/Resolved]
  - Constipation [Unknown]
  - Back pain [Unknown]
  - Myalgia [Unknown]
  - Joint stiffness [Unknown]
  - Pain in extremity [Unknown]
  - Foreign body sensation in eyes [Unknown]
  - Wheezing [Unknown]
  - Micturition urgency [Unknown]
  - Temperature intolerance [Unknown]
  - Balance disorder [Unknown]
  - Hypoaesthesia [Unknown]
  - Affect lability [Unknown]
  - Hypertransaminasaemia [Unknown]
  - Peripheral sensory neuropathy [Unknown]
  - Patellofemoral pain syndrome [Unknown]
  - Hypogonadism [Unknown]
  - Haemochromatosis [Unknown]
  - Amnesia [Unknown]
  - Vision blurred [Unknown]
  - Dyspnoea [Unknown]
  - Dyspepsia [Unknown]
  - Nausea [Unknown]
  - Abdominal distension [Unknown]
  - Dizziness [Unknown]
  - Anxiety [Unknown]
  - Hypertension [Unknown]
  - Depressed mood [Not Recovered/Not Resolved]
  - Middle insomnia [Unknown]
  - Drug ineffective [Unknown]
  - Product use in unapproved indication [Unknown]

NARRATIVE: CASE EVENT DATE: 20220501
